FAERS Safety Report 7905087-7 (Version None)
Quarter: 2011Q4

REPORT INFORMATION
  Report Type: 
  Country: None (occurrence: None)
  Receive Date: 20111109
  Receipt Date: 20111108
  Transmission Date: 20120403
  Serious: Yes (Life-Threatening, Hospitalization, Disabling, Other)
  Sender: FDA-Public Use
  Company Number: PHHY2011GR098160

PATIENT
  Age: 39 Year
  Sex: Male

DRUGS (5)
  1. INSULIN [Concomitant]
     Dosage: UNK
     Route: 058
  2. T4 [Concomitant]
     Dosage: 125 MCG MICROGRAM(S), 1, 1, DAYS
  3. CALCITRIOL [Concomitant]
     Dosage: 0.5 MCG MICROGRAM(S), 1, 1, DAYS
  4. DIURENE [Concomitant]
     Dosage: 0.5, DF DOSAGE FORM, 1, 1, DAYS
     Route: 048
  5. EXJADE [Suspect]
     Indication: THALASSAEMIA
     Dosage: 1750 MG, DAILY
     Route: 048
     Dates: start: 20110407

REACTIONS (1)
  - NON-HODGKIN'S LYMPHOMA [None]
